FAERS Safety Report 8984101 (Version 2)
Quarter: 2013Q1

REPORT INFORMATION
  Report Type: Spontaneous
  Country: GB (occurrence: None)
  Receive Date: 20121214
  Receipt Date: 20130215
  Transmission Date: 20140127
  Serious: Yes (Hospitalization)
  Sender: FDA-Public Use
  Company Number: GB-DEXPHARM-20121756

PATIENT
  Age: 59 Year
  Sex: Female
  Weight: 52 kg

DRUGS (11)
  1. OMEPRAZOLE [Suspect]
     Indication: PRURITUS
     Route: 048
  2. DOXAZOSIN [Concomitant]
  3. ADCAL-D3 [Concomitant]
  4. CANDESARTAN CILEXETIL [Concomitant]
  5. CROTAMITON [Concomitant]
  6. DOXAZOSIN MESILATE [Concomitant]
  7. DARBEPOETIN ALFA [Concomitant]
  8. DIPROBASE [Concomitant]
  9. FOLIC ACID [Concomitant]
  10. PREDNISOLONE [Concomitant]
  11. TELFAST [Concomitant]

REACTIONS (4)
  - Drug interaction [None]
  - Paraesthesia [None]
  - Pain [None]
  - Paraesthesia [None]
